FAERS Safety Report 15226446 (Version 1)
Quarter: 2018Q3

REPORT INFORMATION
  Report Type: Spontaneous
  Country: US (occurrence: US)
  Receive Date: 20180706
  Receipt Date: 20180706
  Transmission Date: 20181010
  Serious: Yes (Hospitalization)
  Sender: FDA-Public Use
  Company Number: None

PATIENT
  Age: 72 Year
  Sex: Female
  Weight: 77.27 kg

DRUGS (4)
  1. BACITRACIN. [Concomitant]
     Active Substance: BACITRACIN
     Dates: start: 20180426
  2. EXPAREL [Suspect]
     Active Substance: BUPIVACAINE
     Indication: ANALGESIC THERAPY
     Route: 058
     Dates: start: 20180426, end: 20180426
  3. BUPIVACAINE/EPINEPHRINE [Concomitant]
     Dates: start: 20180426
  4. ANCEF [Concomitant]
     Active Substance: CEFAZOLIN SODIUM
     Dates: start: 20180426

REACTIONS (6)
  - White blood cell count increased [None]
  - Wound dehiscence [None]
  - Sepsis [None]
  - Pyrexia [None]
  - Hypersensitivity [None]
  - Injection site reaction [None]

NARRATIVE: CASE EVENT DATE: 20180426
